FAERS Safety Report 11086736 (Version 1)
Quarter: 2015Q2

REPORT INFORMATION
  Report Type: Spontaneous
  Country: EG (occurrence: None)
  Receive Date: 20150430
  Receipt Date: 20150430
  Transmission Date: 20150821
  Serious: Yes (Death)
  Sender: FDA-Public Use
  Company Number: 2844114

PATIENT
  Age: 54 Year
  Sex: Male

DRUGS (4)
  1. CYCLOPHOSPAMIDE [Suspect]
     Active Substance: CYCLOPHOSPHAMIDE
     Indication: DIFFUSE LARGE B-CELL LYMPHOMA
     Dosage: 750 MG/M 2 MILLIGRAM(S)/SQ. METER, INTRAVENOUS (NOT OTHERWISE SPECIFIED)??
     Route: 042
  2. DOXORUBICIN [Suspect]
     Active Substance: DOXORUBICIN
     Indication: DIFFUSE LARGE B-CELL LYMPHOMA
     Dosage: 50 MG/M 2 MILLIGRAM(S)/ SQ. METER,?
  3. PREDNISONE. [Suspect]
     Active Substance: PREDNISONE
     Indication: DIFFUSE LARGE B-CELL LYMPHOMA
     Dosage: 100 MG MILIGRAM(S), 1 DAY, ORAL
     Route: 048
  4. VINCRISTINE SULFATE. [Suspect]
     Active Substance: VINCRISTINE SULFATE
     Indication: DIFFUSE LARGE B-CELL LYMPHOMA
     Dosage: 1.4 MG/M 2 MILLIGRAM(S)/SQ. METER, ?

REACTIONS (2)
  - Hepatitis B [None]
  - Hepatic failure [None]
